FAERS Safety Report 8076138-7 (Version None)
Quarter: 2012Q1

REPORT INFORMATION
  Report Type: 
  Country: None (occurrence: None)
  Receive Date: 20120127
  Receipt Date: 20111018
  Transmission Date: 20120608
  Serious: No
  Sender: FDA-Public Use
  Company Number: US-GLAXOSMITHKLINE-A0949527A

PATIENT
  Age: 19 Year
  Sex: Female

DRUGS (2)
  1. ADDERALL 5 [Concomitant]
  2. WELLBUTRIN [Suspect]
     Indication: DEPRESSION
     Dosage: 1TAB PER DAY
     Route: 048
     Dates: start: 20110401

REACTIONS (3)
  - ALOPECIA [None]
  - URTICARIA [None]
  - PAIN OF SKIN [None]
